FAERS Safety Report 4902412-6 (Version None)
Quarter: 2006Q1

REPORT INFORMATION
  Report Type: 
  Country: None (occurrence: None)
  Receive Date: 20060203
  Receipt Date: 20060203
  Transmission Date: 20060701
  Serious: Yes (Other)
  Sender: FDA-Public Use
  Company Number: None

PATIENT
  Sex: Female
  Weight: 59 kg

DRUGS (2)
  1. LEUCOVORIN CALCIUM [Suspect]
     Indication: CENTRAL NERVOUS SYSTEM LYMPHOMA
     Dosage: 3200 MG
     Route: 042
     Dates: start: 20060118, end: 20060123
  2. METHOTREXATE [Suspect]
     Dosage: 9.5 G
     Route: 042
     Dates: start: 20060117, end: 20060117

REACTIONS (1)
  - ASPARTATE AMINOTRANSFERASE INCREASED [None]
